FAERS Safety Report 8952956 (Version 2)
Quarter: 2013Q1

REPORT INFORMATION
  Report Type: Spontaneous
  Country: US (occurrence: US)
  Receive Date: 20121203
  Receipt Date: 20130201
  Transmission Date: 20140127
  Serious: Yes (Other)
  Sender: FDA-Public Use
  Company Number: US-AMGEN-USASP2012076837

PATIENT
  Sex: Female
  Weight: 76.19 kg

DRUGS (2)
  1. ENBREL [Suspect]
     Indication: RHEUMATOID ARTHRITIS
     Dosage: 50 UNK, QWK
     Route: 058
     Dates: start: 20061212, end: 20110222
  2. METHOTREXATE [Concomitant]
     Dosage: UNK

REACTIONS (3)
  - Throat cancer [Unknown]
  - Tongue neoplasm [Unknown]
  - Rheumatoid arthritis [Unknown]
